FAERS Safety Report 7589703-8 (Version None)
Quarter: 2011Q3

REPORT INFORMATION
  Report Type: 
  Country: None (occurrence: None)
  Receive Date: 20110705
  Receipt Date: 20110620
  Transmission Date: 20111222
  Serious: Yes (Hospitalization, Other)
  Sender: FDA-Public Use
  Company Number: US-PFIZER INC-2011132256

PATIENT
  Age: 18 Year
  Sex: Female

DRUGS (7)
  1. CYCLOPHOSPHAMIDE [Suspect]
     Dosage: 50 MG, 1X/DAY
  2. ADALIMUMAB [Suspect]
     Indication: CROHN'S DISEASE
     Dosage: UNK, FORTNIGHTLY INJECTIONS
  3. PREDNISONE [Suspect]
     Indication: TUBULOINTERSTITIAL NEPHRITIS
     Dosage: 60 MG, 1X/DAY
  4. SUMATRIPTAN SUCCINATE [Suspect]
     Indication: PRODUCT USED FOR UNKNOWN INDICATION
     Dosage: UNK
  5. CYCLOPHOSPHAMIDE [Suspect]
     Indication: TUBULOINTERSTITIAL NEPHRITIS
     Dosage: 100 MG, 1X/DAY
  6. PROPRANOLOL [Suspect]
     Indication: PRODUCT USED FOR UNKNOWN INDICATION
     Dosage: UNK
  7. SERTRALINE HYDROCHLORIDE [Suspect]
     Indication: PRODUCT USED FOR UNKNOWN INDICATION
     Dosage: UNK

REACTIONS (5)
  - BLOOD CREATININE INCREASED [None]
  - ABDOMINAL DISTENSION [None]
  - ALOPECIA [None]
  - TUBULOINTERSTITIAL NEPHRITIS [None]
  - PAIN IN EXTREMITY [None]
